FAERS Safety Report 4379105-X (Version None)
Quarter: 2004Q2

REPORT INFORMATION
  Report Type: 
  Country: None (occurrence: None)
  Receive Date: 20040610
  Receipt Date: 20040526
  Transmission Date: 20050107
  Serious: Yes (Death, Hospitalization)
  Sender: FDA-Public Use
  Company Number: DE-JNJFOC-20040404706

PATIENT
  Age: 72 Year
  Sex: Male

DRUGS (9)
  1. REOPRO (ABCIXIMAB) INJECTION [Suspect]
     Indication: ACUTE MYOCARDIAL INFARCTION
     Dosage: SEE IMAGE
  2. RETAVASE (RETEPLASE) LYOPHILIZED POWDER [Suspect]
     Indication: ACUTE MYOCARDIAL INFARCTION
     Dosage: 5 IU, 2 IN 1 TOTAL
  3. ASPIRIN [Concomitant]
  4. HEPARIN [Concomitant]
  5. CLOPIDOGREL (CLOPIDOGREL) [Concomitant]
  6. DIURETICS (DIURETICS) [Concomitant]
  7. BETA BLOCKER (BETA BLOCKING AGENTS) [Concomitant]
  8. INSULIN [Concomitant]
  9. ANTIDIABETIC DRUG (ANTI-DIABETICS) [Concomitant]

REACTIONS (3)
  - CARDIOGENIC SHOCK [None]
  - MITRAL VALVE INCOMPETENCE [None]
  - VASCULAR OCCLUSION [None]
